FAERS Safety Report 4775231-1 (Version None)
Quarter: 2005Q3

REPORT INFORMATION
  Report Type: 
  Country: None (occurrence: None)
  Receive Date: 20050921
  Receipt Date: 20050609
  Transmission Date: 20060218
  Serious: Yes (Death, Hospitalization)
  Sender: FDA-Public Use
  Company Number: US-MERCK-0506USA01861

PATIENT
  Age: 57 Year
  Sex: Male
  Weight: 109 kg

DRUGS (10)
  1. VIOXX [Suspect]
     Indication: BACK PAIN
     Route: 048
     Dates: start: 20021101, end: 20030501
  2. VIOXX [Suspect]
     Route: 048
     Dates: start: 20010101, end: 20021101
  3. VIOXX [Suspect]
     Route: 048
     Dates: start: 20030324
  4. OXYCONTIN [Concomitant]
     Route: 065
     Dates: start: 20010101, end: 20030501
  5. OXYCONTIN [Concomitant]
     Route: 065
     Dates: start: 20010101, end: 20030501
  6. AMBIEN [Concomitant]
     Route: 065
  7. OXYIR [Concomitant]
     Route: 065
     Dates: start: 20010101, end: 20030501
  8. DURAGESIC-100 [Concomitant]
     Route: 065
  9. PROTONIX [Concomitant]
     Route: 065
  10. LIPITOR [Concomitant]
     Route: 065

REACTIONS (44)
  - ANGIOPATHY [None]
  - AORTIC ANEURYSM [None]
  - AORTIC VALVE INCOMPETENCE [None]
  - AORTIC VALVE STENOSIS [None]
  - ARTERIAL DISORDER [None]
  - ARTHRALGIA [None]
  - ATHEROSCLEROSIS [None]
  - BACK PAIN [None]
  - BLOOD CREATININE INCREASED [None]
  - BLOOD THYROID STIMULATING HORMONE INCREASED [None]
  - CARDIAC ARREST [None]
  - CARDIOMYOPATHY [None]
  - CHEST DISCOMFORT [None]
  - CHEST PAIN [None]
  - CHRONIC OBSTRUCTIVE PULMONARY DISEASE [None]
  - CORONARY ARTERY DISEASE [None]
  - CYANOSIS [None]
  - DIAPHRAGMATIC DISORDER [None]
  - DYSPEPSIA [None]
  - ELECTROCARDIOGRAM ST SEGMENT DEPRESSION [None]
  - ELECTROCARDIOGRAM T WAVE PEAKED [None]
  - FALL [None]
  - FEMORAL ARTERY OCCLUSION [None]
  - FLATULENCE [None]
  - GASTROOESOPHAGEAL REFLUX DISEASE [None]
  - HAEMOGLOBIN DECREASED [None]
  - HYPOTENSION [None]
  - INTERNATIONAL NORMALISED RATIO INCREASED [None]
  - INTESTINAL FUNCTIONAL DISORDER [None]
  - LUNG DISORDER [None]
  - LUNG INFILTRATION [None]
  - LUNG NEOPLASM MALIGNANT [None]
  - MYOCARDIAL INFARCTION [None]
  - NODAL OSTEOARTHRITIS [None]
  - OEDEMA PERIPHERAL [None]
  - PAIN IN EXTREMITY [None]
  - PERICARDIAL EFFUSION [None]
  - PERIPHERAL ARTERY ANEURYSM [None]
  - PNEUMONIA [None]
  - PRODUCTIVE COUGH [None]
  - SLEEP APNOEA SYNDROME [None]
  - THROMBOSIS [None]
  - VENTRICULAR FIBRILLATION [None]
  - WHITE BLOOD CELL COUNT INCREASED [None]
